FAERS Safety Report 8183425-0 (Version None)
Quarter: 2012Q1

REPORT INFORMATION
  Report Type: 
  Country: None (occurrence: None)
  Receive Date: 20120305
  Receipt Date: 20120224
  Transmission Date: 20120608
  Serious: Yes (Life-Threatening)
  Sender: FDA-Public Use
  Company Number: ES-COVIDIEN/TYCO HEALTHCARE/MALLINCKRODT-T201200778

PATIENT
  Sex: Female

DRUGS (9)
  1. PREDNISONE TAB [Concomitant]
     Indication: PREMEDICATION
     Dosage: 50 MG GIVEN 13, 7 AND 1 HOUR PRIOR
     Route: 048
     Dates: start: 20100502, end: 20100503
  2. RASILEZ HCT [Concomitant]
  3. LEXATIN                            /00424801/ [Concomitant]
  4. OPTIRAY 160 [Suspect]
     Indication: COMPUTERISED TOMOGRAM
     Dosage: 120 ML, SINGLE
     Route: 042
     Dates: start: 20100503, end: 20100503
  5. LEVOTHYROXINE SODIUM [Concomitant]
  6. EZETIMIBE [Concomitant]
  7. LIPOSCLER [Concomitant]
  8. POLARAMINE [Concomitant]
     Indication: PREMEDICATION
     Dosage: 5 MG SINGLE
     Route: 030
     Dates: start: 20100503, end: 20100503
  9. FLUTICASONE PROPIONATE/SALMETEROL [Concomitant]

REACTIONS (2)
  - URTICARIA [None]
  - DYSPNOEA [None]
